FAERS Safety Report 24796650 (Version 1)
Quarter: 2025Q1

REPORT INFORMATION
  Report Type: Spontaneous
  Country: US (occurrence: US)
  Receive Date: 20250101
  Receipt Date: 20250101
  Transmission Date: 20250408
  Serious: Yes (Hospitalization, Other)
  Sender: AMGEN
  Company Number: US-AMGEN-USASP2024254100

PATIENT
  Age: 63 Year
  Sex: Male

DRUGS (3)
  1. TALIMOGENE LAHERPAREPVEC [Suspect]
     Active Substance: TALIMOGENE LAHERPAREPVEC
     Indication: Squamous cell carcinoma of skin
     Route: 065
  2. TALIMOGENE LAHERPAREPVEC [Suspect]
     Active Substance: TALIMOGENE LAHERPAREPVEC
     Indication: Off label use
  3. CEMIPLIMAB [Concomitant]
     Active Substance: CEMIPLIMAB

REACTIONS (2)
  - Cytomegalovirus gastritis [Recovering/Resolving]
  - Off label use [Unknown]
